FAERS Safety Report 13902521 (Version 1)
Quarter: 2017Q3

REPORT INFORMATION
  Report Type: Spontaneous
  Country: US (occurrence: US)
  Receive Date: 20170824
  Receipt Date: 20170824
  Transmission Date: 20171127
  Serious: No
  Sender: FDA-Public Use
  Company Number: US-ROCHE-1130080

PATIENT
  Sex: Female

DRUGS (9)
  1. HERCEPTIN [Suspect]
     Active Substance: TRASTUZUMAB
     Dosage: CYCLE 2
     Route: 065
     Dates: start: 20000207
  2. HERCEPTIN [Suspect]
     Active Substance: TRASTUZUMAB
     Dosage: CYCLE 5 DAY 8
     Route: 065
     Dates: start: 20000508
  3. HERCEPTIN [Suspect]
     Active Substance: TRASTUZUMAB
     Indication: OVARIAN CANCER
     Route: 065
     Dates: start: 20000131
  4. HERCEPTIN [Suspect]
     Active Substance: TRASTUZUMAB
     Dosage: CYCLE 5 DAY 15
     Route: 065
     Dates: start: 20000515
  5. GRANISETRON HCL [Concomitant]
     Route: 065
  6. HERCEPTIN [Suspect]
     Active Substance: TRASTUZUMAB
     Dosage: CYCLE 2 DAY 15
     Route: 065
     Dates: start: 20000221
  7. HERCEPTIN [Suspect]
     Active Substance: TRASTUZUMAB
     Dosage: CYCLE 2 DAY 22
     Route: 065
     Dates: start: 20000228
  8. HERCEPTIN [Suspect]
     Active Substance: TRASTUZUMAB
     Dosage: CYCLE 5 DAY 22
     Route: 065
     Dates: start: 20000522
  9. TAXOL [Concomitant]
     Active Substance: PACLITAXEL

REACTIONS (3)
  - Fatigue [Unknown]
  - Dyspnoea [Recovered/Resolved]
  - Insomnia [Unknown]
